FAERS Safety Report 23902805 (Version 3)
Quarter: 2024Q2

REPORT INFORMATION
  Report Type: Spontaneous
  Country: TW (occurrence: TW)
  Receive Date: 20240527
  Receipt Date: 20240611
  Transmission Date: 20240716
  Serious: Yes (Hospitalization, Other)
  Sender: FDA-Public Use
  Company Number: TW-CHUGAI-2024016911

PATIENT
  Age: 64 Year
  Sex: Male
  Weight: 68 kg

DRUGS (7)
  1. ACTEMRA [Suspect]
     Active Substance: TOCILIZUMAB
     Indication: Rheumatoid arthritis
     Route: 058
     Dates: start: 20210608, end: 20240515
  2. ASPIRIN [Concomitant]
     Active Substance: ASPIRIN
     Dosage: 100 MILLIGRAM, QD
     Dates: start: 20201112
  3. KENTAMIN [Concomitant]
     Dosage: 2,QN
     Dates: start: 20201112
  4. ETORICOXIB [Concomitant]
     Active Substance: ETORICOXIB
     Dosage: 60 MILLIGRAM, QD
     Dates: start: 20201112
  5. ROSIS [FUROSEMIDE] [Concomitant]
     Dosage: 20 MILLIGRAM, QD
     Dates: start: 20201112
  6. FOLIC ACID [Concomitant]
     Active Substance: FOLIC ACID
     Dosage: 5 MILLIGRAM, QD
     Dates: start: 20201112
  7. METHOTREXATE [Concomitant]
     Active Substance: METHOTREXATE
     Dosage: 2.5 MILLIGRAM, BIW
     Dates: start: 20201112

REACTIONS (2)
  - Sinusitis [Unknown]
  - Cerebrovascular accident [Not Recovered/Not Resolved]

NARRATIVE: CASE EVENT DATE: 20240515
